FAERS Safety Report 6834906-0 (Version None)
Quarter: 2010Q3

REPORT INFORMATION
  Report Type: 
  Country: None (occurrence: None)
  Receive Date: 20100712
  Receipt Date: 20070625
  Transmission Date: 20110219
  Serious: Yes (Other)
  Sender: FDA-Public Use
  Company Number: US-PFIZER INC-2007033282

PATIENT
  Sex: Female
  Weight: 56.7 kg

DRUGS (4)
  1. CHANTIX [Suspect]
     Indication: TOBACCO ABUSE
     Dates: start: 20070327, end: 20070420
  2. AMITRIPTYLINE HYDROCHLORIDE [Concomitant]
     Dosage: 25 MG,AT BEDTIME
  3. ESTROGENS [Concomitant]
  4. ALBUTEROL [Concomitant]

REACTIONS (4)
  - CHEST PAIN [None]
  - JOINT RANGE OF MOTION DECREASED [None]
  - MUSCULOSKELETAL PAIN [None]
  - NECK PAIN [None]
